FAERS Safety Report 17572111 (Version 1)
Quarter: 2020Q1

REPORT INFORMATION
  Report Type: Report from Study
  Country: CA (occurrence: CA)
  Receive Date: 20200323
  Receipt Date: 20200323
  Transmission Date: 20200409
  Serious: Yes (Other)
  Sender: FDA-Public Use
  Company Number: CA-GLAXOSMITHKLINE-CA2020AMR015455

PATIENT
  Age: 58 Year
  Sex: Male

DRUGS (4)
  1. MEPOLIZUMAB [Suspect]
     Active Substance: MEPOLIZUMAB
     Indication: ASTHMA
     Dosage: 100 MG, Z(MONTHLY)
     Route: 042
     Dates: start: 20170512
  2. PREDNISONE. [Suspect]
     Active Substance: PREDNISONE
     Indication: PHARYNGITIS
     Dosage: UNK, LAST PILL IN 2 DAYS
  3. VENTOLIN [Suspect]
     Active Substance: ALBUTEROL SULFATE
     Indication: ASTHMA
     Dosage: UNK UNK, PRN, 1-2 TIMES A DAY
  4. FLOVENT DISKUS [Suspect]
     Active Substance: FLUTICASONE PROPIONATE
     Indication: ASTHMA
     Dosage: UNK,  1-2 TIMES PER DAY

REACTIONS (8)
  - Dyspnoea [Unknown]
  - Drug ineffective [Unknown]
  - Bronchiectasis [Unknown]
  - Pharyngitis [Unknown]
  - Agitation [Unknown]
  - Infection [Not Recovered/Not Resolved]
  - Loss of personal independence in daily activities [Unknown]
  - Secretion discharge [Unknown]

NARRATIVE: CASE EVENT DATE: 201912
